FAERS Safety Report 15074687 (Version 1)
Quarter: 2018Q2

REPORT INFORMATION
  Report Type: Report from Study
  Country: US (occurrence: US)
  Receive Date: 20180627
  Receipt Date: 20180627
  Transmission Date: 20180711
  Serious: No
  Sender: FDA-Public Use
  Company Number: US-SAOL THERAPEUTICS-2017SAO01168

PATIENT
  Sex: Female

DRUGS (10)
  1. BUPIVACAINE. [Suspect]
     Active Substance: BUPIVACAINE
     Dosage: 12.491 MG, \DAY
     Route: 037
     Dates: start: 20160310
  2. BUPIVACAINE. [Suspect]
     Active Substance: BUPIVACAINE
     Dosage: 17.192 MG, \DAY
     Route: 037
     Dates: start: 20160310
  3. DROPERIDOL. [Suspect]
     Active Substance: DROPERIDOL
     Dosage: 83.27 ?G, \DAY
     Route: 037
     Dates: start: 20160310
  4. COMPOUNDED BACLOFEN [Suspect]
     Active Substance: BACLOFEN
     Dosage: 208.18 ?G, \DAY
     Route: 037
     Dates: start: 20160310
  5. CLONIDINE. [Suspect]
     Active Substance: CLONIDINE
     Dosage: 83.27 ?G, \DAY
     Route: 037
     Dates: start: 20160310
  6. CLONIDINE. [Suspect]
     Active Substance: CLONIDINE
     Dosage: 114.61 ?G, \DAY
     Route: 037
     Dates: start: 20160310
  7. COMPOUNDED BACLOFEN [Suspect]
     Active Substance: BACLOFEN
     Dosage: 286.53 ?G, \DAY
     Route: 037
     Dates: start: 20160310
  8. DILAUDID [Suspect]
     Active Substance: HYDROMORPHONE HYDROCHLORIDE
     Dosage: 1.7192 MG, \DAY
     Route: 037
     Dates: start: 20160310
  9. DILAUDID [Suspect]
     Active Substance: HYDROMORPHONE HYDROCHLORIDE
     Dosage: 1.2491 MG, \DAY
     Route: 037
     Dates: start: 20160310
  10. DROPERIDOL. [Suspect]
     Active Substance: DROPERIDOL
     Dosage: 114.61 ?G, \DAY
     Route: 037
     Dates: start: 20160310

REACTIONS (1)
  - Dizziness [Recovered/Resolved]

NARRATIVE: CASE EVENT DATE: 20160512
